FAERS Safety Report 9055020 (Version 1)
Quarter: 2013Q1

REPORT INFORMATION
  Report Type: Spontaneous
  Country: CA (occurrence: CA)
  Receive Date: 20130206
  Receipt Date: 20130206
  Transmission Date: 20140127
  Serious: Yes (Other)
  Sender: FDA-Public Use
  Company Number: CA-ROCHE-1187993

PATIENT
  Age: 56 Year
  Sex: Female

DRUGS (11)
  1. RITUXAN [Suspect]
     Indication: PRODUCT USED FOR UNKNOWN INDICATION
     Route: 042
  2. FOLIC ACID [Concomitant]
     Route: 065
  3. LASIX [Concomitant]
     Route: 065
  4. LOPRESOR [Concomitant]
     Route: 065
  5. LYRICA [Concomitant]
     Route: 065
  6. METHOTREXATE [Concomitant]
     Route: 065
  7. NORVASC [Concomitant]
     Route: 065
  8. PREDNISONE [Concomitant]
     Route: 065
  9. PREVACID [Concomitant]
     Route: 065
  10. QUININE [Concomitant]
     Route: 065
  11. TYLENOL #3 (CANADA) [Concomitant]
     Route: 065

REACTIONS (1)
  - Lower limb fracture [Unknown]
